FAERS Safety Report 15748905 (Version 1)
Quarter: 2018Q4

REPORT INFORMATION
  Report Type: Spontaneous
  Country: US (occurrence: US)
  Receive Date: 20181221
  Receipt Date: 20181221
  Transmission Date: 20190205
  Serious: No
  Sender: FDA-Public Use
  Company Number: US-RECKITT BENCKISER HEALTHCARE INT LIMITED-RB-98963-2017

PATIENT
  Age: 5 Year
  Sex: Male

DRUGS (4)
  1. MOTRIN [Concomitant]
     Active Substance: IBUPROFEN
     Indication: COUGH
     Dosage: UNK
     Route: 065
  2. DELSYM [Suspect]
     Active Substance: DEXTROMETHORPHAN
     Dosage: 5 ML, SINGLE
     Route: 065
  3. MOTRIN [Concomitant]
     Active Substance: IBUPROFEN
     Indication: PYREXIA
  4. DELSYM [Suspect]
     Active Substance: DEXTROMETHORPHAN
     Indication: PRODUCT USED FOR UNKNOWN INDICATION
     Dosage: 2.5 ML, SINGLE
     Route: 065

REACTIONS (1)
  - Incorrect product administration duration [Unknown]
